FAERS Safety Report 9852328 (Version 1)
Quarter: 2014Q1

REPORT INFORMATION
  Report Type: Spontaneous
  Country: US (occurrence: None)
  Receive Date: 20140128
  Receipt Date: 20140128
  Transmission Date: 20141002
  Serious: Yes (Other)
  Sender: FDA-Public Use
  Company Number: None

PATIENT
  Age: 60 Year
  Sex: Female
  Weight: 72.58 kg

DRUGS (6)
  1. WELCHOL [Suspect]
     Indication: BLOOD CHOLESTEROL INCREASED
     Dosage: BY MOUTH, 3W TABS. BID.
     Dates: start: 20130613, end: 20130915
  2. ATENOLOL [Concomitant]
  3. LEVOTHYROXIN [Concomitant]
  4. ASPIRIN [Concomitant]
  5. FISHOIL [Concomitant]
  6. VITAMIN B12 [Concomitant]

REACTIONS (2)
  - Dyspepsia [None]
  - Dysphagia [None]
